FAERS Safety Report 16168776 (Version 1)
Quarter: 2019Q2

REPORT INFORMATION
  Report Type: Spontaneous
  Country: US (occurrence: US)
  Receive Date: 20190408
  Receipt Date: 20190408
  Transmission Date: 20190711
  Serious: No
  Sender: FDA-Public Use
  Company Number: US-MYLANLABS-2019M1027333

PATIENT
  Age: 72 Year
  Sex: Female
  Weight: 88 kg

DRUGS (2)
  1. GLATIRAMER ACETATE INJECTION [Suspect]
     Active Substance: GLATIRAMER ACETATE
     Indication: RELAPSING-REMITTING MULTIPLE SCLEROSIS
     Dosage: UNK UNK, Q3D
     Route: 058
     Dates: start: 20190221, end: 20190320
  2. GABAPENTIN. [Concomitant]
     Active Substance: GABAPENTIN
     Dosage: 1 DOSAGE FORM, QD

REACTIONS (5)
  - Flushing [Recovered/Resolved]
  - Muscle spasms [Recovered/Resolved]
  - Pain [Recovered/Resolved]
  - Chills [Recovered/Resolved]
  - Headache [Recovered/Resolved]

NARRATIVE: CASE EVENT DATE: 20190317
